FAERS Safety Report 7380308-0 (Version None)
Quarter: 2011Q1

REPORT INFORMATION
  Report Type: 
  Country: None (occurrence: None)
  Receive Date: 20110324
  Receipt Date: 20110324
  Transmission Date: 20110831
  Serious: Yes (Other)
  Sender: FDA-Public Use
  Company Number: None

PATIENT
  Sex: Female
  Weight: 72.5755 kg

DRUGS (1)
  1. ABILIFY [Suspect]
     Indication: BIPOLAR DISORDER
     Dosage: 10MG X3 1 TIME IN AM PO
     Route: 048
     Dates: start: 20030101, end: 20110323

REACTIONS (5)
  - WEIGHT INCREASED [None]
  - PRODUCT SUBSTITUTION ISSUE [None]
  - INCREASED APPETITE [None]
  - PRODUCT FORMULATION ISSUE [None]
  - MUSCLE SPASMS [None]
